FAERS Safety Report 5468122-4 (Version None)
Quarter: 2007Q3

REPORT INFORMATION
  Report Type: 
  Country: None (occurrence: None)
  Receive Date: 20070820
  Receipt Date: 20070511
  Transmission Date: 20080115
  Serious: No
  Sender: FDA-Public Use
  Company Number: WAES 0703USA01550

PATIENT
  Sex: Male

DRUGS (2)
  1. JANUVIA [Suspect]
     Dosage: PO
     Route: 048
  2. DIGOXIN [Concomitant]

REACTIONS (2)
  - CARDIOACTIVE DRUG LEVEL INCREASED [None]
  - HEART RATE DECREASED [None]
